FAERS Safety Report 6600814-3 (Version None)
Quarter: 2010Q1

REPORT INFORMATION
  Report Type: 
  Country: None (occurrence: None)
  Receive Date: 20100223
  Receipt Date: 20100223
  Transmission Date: 20100710
  Serious: No
  Sender: FDA-Public Use
  Company Number: None

PATIENT
  Age: 55 Year
  Sex: Female
  Weight: 61.2356 kg

DRUGS (1)
  1. BONIVA [Suspect]
     Indication: MENOPAUSE
     Dosage: 150 MG ONCE PER MONTH PO
     Route: 048
     Dates: start: 20100219, end: 20100219

REACTIONS (8)
  - BACK PAIN [None]
  - BONE PAIN [None]
  - CHEST PAIN [None]
  - DYSSTASIA [None]
  - MUSCULOSKELETAL PAIN [None]
  - MYALGIA [None]
  - MYOCARDIAL INFARCTION [None]
  - PAIN IN EXTREMITY [None]
